FAERS Safety Report 11127301 (Version 1)
Quarter: 2015Q2

REPORT INFORMATION
  Report Type: Spontaneous
  Country: None (occurrence: None)
  Receive Date: 20150520
  Receipt Date: 20150520
  Transmission Date: 20150821
  Serious: Yes (Other)
  Sender: FDA-Public Use
  Company Number: None

PATIENT

DRUGS (1)
  1. NIX [Suspect]
     Active Substance: PERMETHRIN

REACTIONS (2)
  - Drug resistance [None]
  - Drug ineffective [None]

NARRATIVE: CASE EVENT DATE: 20150514
